FAERS Safety Report 25089602 (Version 1)
Quarter: 2025Q1

REPORT INFORMATION
  Report Type: Spontaneous
  Country: ES (occurrence: ES)
  Receive Date: 20250318
  Receipt Date: 20250318
  Transmission Date: 20250409
  Serious: Yes (Other)
  Sender: BAUSCH AND LOMB
  Company Number: None

PATIENT
  Age: 75 Year
  Sex: Male
  Weight: 70 kg

DRUGS (2)
  1. HYDROCORTISONE [Interacting]
     Active Substance: HYDROCORTISONE
     Indication: Influenza
     Route: 042
     Dates: start: 20250131, end: 20250131
  2. METHYLPREDNISOLONE [Interacting]
     Active Substance: METHYLPREDNISOLONE
     Indication: Influenza
     Route: 042
     Dates: start: 20250131, end: 20250207

REACTIONS (2)
  - Concomitant disease aggravated [Recovered/Resolved]
  - Hyperglycaemia [Recovered/Resolved]

NARRATIVE: CASE EVENT DATE: 20250201
